FAERS Safety Report 24749399 (Version 1)
Quarter: 2024Q4

REPORT INFORMATION
  Report Type: Spontaneous
  Country: CN (occurrence: CN)
  Receive Date: 20241218
  Receipt Date: 20241218
  Transmission Date: 20250115
  Serious: Yes (Life-Threatening, Hospitalization)
  Sender: GE HEALTHCARE
  Company Number: CN-GE HEALTHCARE-2024CSU014494

PATIENT
  Age: 72 Year
  Sex: Male

DRUGS (1)
  1. VISIPAQUE [Suspect]
     Active Substance: IODIXANOL
     Indication: Computerised tomogram
     Dosage: 73 ML, TOTAL
     Route: 042
     Dates: start: 20241205, end: 20241205

REACTIONS (7)
  - Apallic syndrome [Not Recovered/Not Resolved]
  - Restlessness [Not Recovered/Not Resolved]
  - Brain death [Not Recovered/Not Resolved]
  - Vomiting [Recovering/Resolving]
  - Oxygen saturation decreased [Not Recovered/Not Resolved]
  - Myocardial infarction [Recovering/Resolving]
  - Contrast media allergy [Not Recovered/Not Resolved]

NARRATIVE: CASE EVENT DATE: 20241205
